FAERS Safety Report 5362999-9 (Version None)
Quarter: 2007Q2

REPORT INFORMATION
  Report Type: 
  Country: None (occurrence: None)
  Receive Date: 20070615
  Receipt Date: 20070531
  Transmission Date: 20071010
  Serious: Yes (Other)
  Sender: FDA-Public Use
  Company Number: 2007RR-07889

PATIENT
  Age: 43 Year
  Sex: Male
  Weight: 77 kg

DRUGS (8)
  1. FENOFIBRATE [Suspect]
     Indication: BLOOD TRIGLYCERIDES
     Dosage: QD, ORAL
     Route: 048
     Dates: start: 20070507, end: 20070513
  2. ABACAVIR SULPHATE (ABACAVIR) [Concomitant]
  3. CO-PHENOTROPE [Concomitant]
  4. LEVOMEPROMAZINE MALEATE (LEVOMEPROMAZINE) [Concomitant]
  5. LOPERAMIDE HYDROCHLORIDE (LOPERAMIDE) [Concomitant]
  6. NEVIRAPINE [Concomitant]
  7. TADAFIL [Concomitant]
  8. TENOFOVIR [Concomitant]

REACTIONS (1)
  - MIGRAINE [None]
